FAERS Safety Report 9338239 (Version 1)
Quarter: 2013Q2

REPORT INFORMATION
  Report Type: Spontaneous
  Country: US (occurrence: None)
  Receive Date: 20130605
  Receipt Date: 20130605
  Transmission Date: 20140414
  Serious: Yes (Other)
  Sender: FDA-Public Use
  Company Number: None

PATIENT
  Age: 16 Year
  Sex: Female
  Weight: 63.8 kg

DRUGS (2)
  1. ZONEGRAN [Suspect]
     Indication: EPILEPSY
     Dosage: 2, BID, PO
     Route: 048
     Dates: start: 20080208
  2. ZONEGRAN [Suspect]
     Indication: ENCEPHALOPATHY
     Dosage: 2, BID, PO
     Route: 048
     Dates: start: 20080208

REACTIONS (1)
  - Rash [None]
